FAERS Safety Report 9914492 (Version 3)
Quarter: 2014Q1

REPORT INFORMATION
  Report Type: Report from Study
  Country: TR (occurrence: TR)
  Receive Date: 20140220
  Receipt Date: 20140310
  Transmission Date: 20141002
  Serious: Yes (Hospitalization, Other)
  Sender: FDA-Public Use
  Company Number: TR-PFIZER INC-2013342659

PATIENT
  Sex: Male
  Weight: 95 kg

DRUGS (5)
  1. CORDARONE [Suspect]
     Dosage: 200 MG, 1X/DAY
  2. ECOPIRIN [Suspect]
     Dosage: 150 MG, 1X/DAY
  3. DIGOXIN [Concomitant]
     Indication: ATRIAL FIBRILLATION
     Dosage: 200 MG, UNK
  4. BELOC [Concomitant]
     Indication: ATRIAL FIBRILLATION
     Dosage: 50 MG, UNK
  5. MONODUR [Concomitant]
     Dosage: UNK

REACTIONS (5)
  - Intestinal haemorrhage [Unknown]
  - Cardiac disorder [Unknown]
  - Arrhythmia [Unknown]
  - Cardiac failure [Unknown]
  - Cerebrovascular accident [Unknown]
